FAERS Safety Report 21602790 (Version 1)
Quarter: 2022Q4

REPORT INFORMATION
  Report Type: Spontaneous
  Country: US (occurrence: None)
  Receive Date: 20221115
  Receipt Date: 20221115
  Transmission Date: 20230113
  Serious: Yes (Disabling)
  Sender: FDA-Public Use
  Company Number: None

PATIENT
  Age: 13 Year
  Sex: Female
  Weight: 74.7 kg

DRUGS (2)
  1. METHYLPHENIDATE HYDROCHLORIDE [Suspect]
     Active Substance: METHYLPHENIDATE HYDROCHLORIDE
     Indication: Attention deficit hyperactivity disorder
     Route: 048
     Dates: start: 20221111
  2. GUANFACINE [Concomitant]
     Active Substance: GUANFACINE

REACTIONS (6)
  - Headache [None]
  - Abdominal pain upper [None]
  - Therapeutic response changed [None]
  - Product complaint [None]
  - Product substitution issue [None]
  - Product substitution issue [None]

NARRATIVE: CASE EVENT DATE: 20221115
